FAERS Safety Report 7749943-1 (Version None)
Quarter: 2011Q3

REPORT INFORMATION
  Report Type: 
  Country: None (occurrence: None)
  Receive Date: 20110914
  Receipt Date: 20110902
  Transmission Date: 20111222
  Serious: Yes (Death, Life-Threatening, Hospitalization)
  Sender: FDA-Public Use
  Company Number: NO-MILLENNIUM PHARMACEUTICALS, INC.-2011-04035

PATIENT

DRUGS (7)
  1. EPOETIN ALFA [Concomitant]
     Dosage: UNK
  2. VELCADE [Suspect]
     Indication: MULTIPLE MYELOMA
     Dosage: 1.3 MG, CYCLIC
     Route: 042
     Dates: start: 20110110
  3. VENTOLIN [Concomitant]
     Indication: STRIDOR
  4. DEXAMETHASONE [Suspect]
     Route: 048
  5. VELCADE [Suspect]
     Dosage: 1.3 MG, UNK
     Route: 042
     Dates: start: 20110411, end: 20110420
  6. ATROVENT [Concomitant]
  7. DEXAMETHASONE [Suspect]
     Indication: MULTIPLE MYELOMA
     Dosage: 213 MG, UNK
     Route: 048
     Dates: start: 20110422, end: 20110424

REACTIONS (2)
  - CLOSTRIDIUM DIFFICILE COLITIS [None]
  - SEPSIS [None]
